FAERS Safety Report 13074360 (Version 1)
Quarter: 2016Q4

REPORT INFORMATION
  Report Type: Spontaneous
  Country: AU (occurrence: AU)
  Receive Date: 20161230
  Receipt Date: 20161230
  Transmission Date: 20170207
  Serious: Yes (Other)
  Sender: FDA-Public Use
  Company Number: AU-ROCHE-1871978

PATIENT
  Sex: Female

DRUGS (4)
  1. PANADOL [Concomitant]
     Active Substance: ACETAMINOPHEN
     Route: 065
     Dates: start: 2012, end: 201608
  2. MABTHERA [Suspect]
     Active Substance: RITUXIMAB
     Indication: IMMUNOSUPPRESSION
     Route: 042
     Dates: start: 20160407
  3. PHENERGAN [Concomitant]
     Active Substance: PROMETHAZINE HYDROCHLORIDE
  4. ENBREL [Concomitant]
     Active Substance: ETANERCEPT

REACTIONS (8)
  - Skin warm [Recovered/Resolved]
  - Rash erythematous [Recovered/Resolved]
  - Hypersensitivity [Unknown]
  - C-reactive protein increased [Unknown]
  - Gastrooesophageal reflux disease [Unknown]
  - Pruritus [Recovered/Resolved]
  - Gastric disorder [Unknown]
  - Agitation [Unknown]

NARRATIVE: CASE EVENT DATE: 201608
